FAERS Safety Report 17242803 (Version 4)
Quarter: 2020Q1

REPORT INFORMATION
  Report Type: Spontaneous
  Country: ID (occurrence: ID)
  Receive Date: 20200107
  Receipt Date: 20200225
  Transmission Date: 20200409
  Serious: Yes (Death)
  Sender: FDA-Public Use
  Company Number: ID-PFIZER INC-2020002072

PATIENT
  Age: 29 Year
  Sex: Male

DRUGS (2)
  1. FLUCONAZOLE. [Suspect]
     Active Substance: FLUCONAZOLE
     Indication: NEUROCRYPTOCOCCOSIS
     Dosage: 1200 MG, DAILY
     Route: 042
  2. FLUCONAZOLE. [Suspect]
     Active Substance: FLUCONAZOLE
     Indication: NEUROCRYPTOCOCCOSIS
     Dosage: 1200 MG, DAILY
     Route: 048

REACTIONS (2)
  - Intentional overdose [Unknown]
  - Drug ineffective [Fatal]
